FAERS Safety Report 23080456 (Version 4)
Quarter: 2023Q4

REPORT INFORMATION
  Report Type: Spontaneous
  Country: CO (occurrence: CO)
  Receive Date: 20231018
  Receipt Date: 20231222
  Transmission Date: 20240110
  Serious: Yes (Other)
  Sender: FDA-Public Use
  Company Number: CO-SA-SAC20231017000147

PATIENT
  Age: 66 Year
  Sex: Female
  Weight: 50 kg

DRUGS (6)
  1. ARAVA [Suspect]
     Active Substance: LEFLUNOMIDE
     Indication: Rheumatoid arthritis
     Dosage: UNK
     Route: 048
     Dates: start: 2010, end: 2014
  2. ARAVA [Suspect]
     Active Substance: LEFLUNOMIDE
     Indication: Arthritis
  3. ABATACEPT [Concomitant]
     Active Substance: ABATACEPT
     Indication: Rheumatoid arthritis
     Dosage: UNK, QM
  4. ABATACEPT [Concomitant]
     Active Substance: ABATACEPT
     Indication: Arthritis
  5. DEFLAZACORT [Concomitant]
     Active Substance: DEFLAZACORT
     Indication: Rheumatoid arthritis
     Dosage: 3 MG, QD
     Route: 048
  6. DEFLAZACORT [Concomitant]
     Active Substance: DEFLAZACORT
     Indication: Arthritis

REACTIONS (10)
  - Cellulitis [Recovered/Resolved]
  - Cellulitis [Recovered/Resolved]
  - Arterial stenosis [Not Recovered/Not Resolved]
  - Pain in extremity [Recovering/Resolving]
  - Fatigue [Recovering/Resolving]
  - Decreased appetite [Recovering/Resolving]
  - Toxicity to various agents [Recovered/Resolved]
  - Discomfort [Recovering/Resolving]
  - Vasculitis [Recovered/Resolved]
  - Foot amputation [Recovered/Resolved]

NARRATIVE: CASE EVENT DATE: 20120101
